FAERS Safety Report 15349299 (Version 3)
Quarter: 2019Q1

REPORT INFORMATION
  Report Type: Report from Study
  Country: JP (occurrence: JP)
  Receive Date: 20180904
  Receipt Date: 20190227
  Transmission Date: 20190417
  Serious: Yes (Hospitalization)
  Sender: FDA-Public Use
  Company Number: JP-PFIZER INC-2018346693

PATIENT
  Age: 71 Year
  Sex: Female
  Weight: 41 kg

DRUGS (23)
  1. PREDNISOLONE. [Concomitant]
     Active Substance: PREDNISOLONE
     Dosage: 10 MG, DAILY
     Route: 048
     Dates: start: 20150213, end: 20150714
  2. LOXONIN [Concomitant]
     Active Substance: LOXOPROFEN SODIUM
     Dosage: UNK
     Route: 048
     Dates: start: 20070207
  3. ONEALFA [Concomitant]
     Active Substance: ALFACALCIDOL
     Dosage: UNK
  4. VOLTAREN [Concomitant]
     Active Substance: DICLOFENAC SODIUM
     Dosage: UNK
     Route: 054
  5. XYZAL [Concomitant]
     Active Substance: LEVOCETIRIZINE DIHYDROCHLORIDE
     Dosage: UNK
     Route: 048
     Dates: start: 20160427
  6. PROPETO [Concomitant]
     Dosage: UNK
     Route: 061
  7. PREDNISOLONE. [Concomitant]
     Active Substance: PREDNISOLONE
     Dosage: 5 MG, DAILY
     Route: 048
     Dates: start: 20150715, end: 20150908
  8. ATARAX-P [HYDROXYZINE EMBONATE] [Concomitant]
     Dosage: UNK
     Route: 048
  9. TAKELDA [Concomitant]
     Active Substance: ASPIRIN\LANSOPRAZOLE
     Dosage: UNK
  10. LYRICA CAPSULES [Concomitant]
     Dosage: UNK
  11. EURAX [Concomitant]
     Active Substance: CROTAMITON
     Dosage: UNK
     Route: 061
  12. LOXONIN GEL [Concomitant]
     Dosage: UNK
     Route: 061
     Dates: start: 20160427
  13. PREDNISOLONE. [Concomitant]
     Active Substance: PREDNISOLONE
     Indication: RHEUMATOID ARTHRITIS
     Dosage: 5 MG, DAILY
     Route: 048
     Dates: end: 20150212
  14. XELJANZ [Suspect]
     Active Substance: TOFACITINIB CITRATE
     Indication: RHEUMATOID ARTHRITIS
     Dosage: 5 MG, 2X/DAY
     Route: 048
     Dates: start: 20150311, end: 20160329
  15. ITOROL [Concomitant]
     Active Substance: ISOSORBIDE MONONITRATE
     Dosage: UNK
     Route: 048
  16. MAGMITT [Concomitant]
     Active Substance: MAGNESIUM OXIDE
     Dosage: UNK
     Route: 048
     Dates: start: 20160427
  17. PREDNISOLONE. [Concomitant]
     Active Substance: PREDNISOLONE
     Dosage: 2.5 MG, DAILY
     Dates: start: 20150909, end: 20170329
  18. FEBURIC [Concomitant]
     Active Substance: FEBUXOSTAT
     Dosage: UNK
  19. ARASENA-A OINT. [Concomitant]
     Dosage: UNK
     Route: 061
     Dates: start: 20161207
  20. TARIVID OTIC SOLUTION [Concomitant]
     Dosage: UNK
     Route: 061
  21. XELJANZ [Suspect]
     Active Substance: TOFACITINIB CITRATE
     Dosage: 5 MG, 2X/DAY
     Route: 048
     Dates: start: 20160411, end: 20170419
  22. MUCOSTA [Concomitant]
     Active Substance: REBAMIPIDE
     Dosage: UNK
     Route: 048
  23. AIMIX [Concomitant]
     Active Substance: AMLODIPINE BESYLATE\IRBESARTAN
     Dosage: UNK

REACTIONS (2)
  - Renal neoplasm [Recovering/Resolving]
  - Enteritis infectious [Recovering/Resolving]

NARRATIVE: CASE EVENT DATE: 20170419
